FAERS Safety Report 12859219 (Version 1)
Quarter: 2016Q4

REPORT INFORMATION
  Report Type: Spontaneous
  Country: CA (occurrence: CA)
  Receive Date: 20161018
  Receipt Date: 20161018
  Transmission Date: 20170207
  Serious: Yes (Other)
  Sender: FDA-Public Use
  Company Number: CA-SA-2016SA186977

PATIENT
  Sex: Female

DRUGS (3)
  1. HUMIRA [Suspect]
     Active Substance: ADALIMUMAB
     Dosage: SOLUTION SUBCUTANEOUS 1 EVERY 2 WEEK(S)
     Route: 058
  2. LEFLUNOMIDE. [Suspect]
     Active Substance: LEFLUNOMIDE
     Route: 065
  3. ENBREL [Suspect]
     Active Substance: ETANERCEPT
     Dosage: SOLUTION SUBCUTANEOUS
     Route: 058

REACTIONS (7)
  - Urinary tract infection [Unknown]
  - Drug intolerance [Unknown]
  - Dyspnoea [Unknown]
  - Hypersensitivity [Unknown]
  - Rash [Unknown]
  - Fatigue [Unknown]
  - Skin disorder [Unknown]
